FAERS Safety Report 5140974-7 (Version None)
Quarter: 2006Q4

REPORT INFORMATION
  Report Type: 
  Country: None (occurrence: None)
  Receive Date: 20061027
  Receipt Date: 20061027
  Transmission Date: 20070319
  Serious: Yes (Hospitalization)
  Sender: FDA-Public Use
  Company Number: None

PATIENT
  Age: 61 Year
  Sex: Male

DRUGS (12)
  1. HEPARIN [Suspect]
     Indication: THROMBOSIS PROPHYLAXIS
     Dosage: 5000UNITS SC Q8H
     Route: 058
     Dates: start: 20060803, end: 20060806
  2. ARGATROBAN [Suspect]
     Indication: ANTICOAGULANT THERAPY
     Dosage: 2 MCG/KG/MIN IV
     Route: 042
     Dates: start: 20060902, end: 20060904
  3. ARGATROBAN [Suspect]
     Indication: CEREBROVASCULAR ACCIDENT
     Dosage: 2 MCG/KG/MIN IV
     Route: 042
     Dates: start: 20060902, end: 20060904
  4. ACETAMINOPHEN [Concomitant]
  5. ALBUTEROL [Concomitant]
  6. ASPIRIN [Concomitant]
  7. CALCIUM ACETATE [Concomitant]
  8. CASPOFUNGIN [Concomitant]
  9. CILASTATIN/IMIPENEM [Concomitant]
  10. HALOPERIDOL [Concomitant]
  11. HYDROCORTISONE SODIUM SUCCINATE [Concomitant]
  12. IPRATROPIUM BR [Concomitant]

REACTIONS (3)
  - CEREBROVASCULAR ACCIDENT [None]
  - GASTROINTESTINAL HAEMORRHAGE [None]
  - THROMBOCYTOPENIA [None]
